FAERS Safety Report 9519154 (Version 1)
Quarter: 2013Q3

REPORT INFORMATION
  Report Type: Spontaneous
  Country: US (occurrence: US)
  Receive Date: 20130912
  Receipt Date: 20130912
  Transmission Date: 20140515
  Serious: Yes (Other)
  Sender: FDA-Public Use
  Company Number: US-ELI_LILLY_AND_COMPANY-US201309000124

PATIENT
  Sex: Female

DRUGS (2)
  1. CYMBALTA [Suspect]
     Indication: FIBROMYALGIA
     Dosage: 60 MG, QD
     Dates: start: 201209
  2. CYMBALTA [Suspect]
     Dosage: 30 MG, UNK

REACTIONS (10)
  - Suicidal ideation [Unknown]
  - Abnormal behaviour [Unknown]
  - Mental impairment [Unknown]
  - Malaise [Unknown]
  - Crying [Unknown]
  - Frustration [Unknown]
  - Depression [Not Recovered/Not Resolved]
  - Feeling abnormal [Unknown]
  - Paraesthesia [Unknown]
  - Drug withdrawal syndrome [Unknown]
